FAERS Safety Report 16080011 (Version 2)
Quarter: 2019Q4

REPORT INFORMATION
  Report Type: Spontaneous
  Country: CA (occurrence: CA)
  Receive Date: 20190315
  Receipt Date: 20191210
  Transmission Date: 20200122
  Serious: Yes (Other)
  Sender: FDA-Public Use
  Company Number: CA-TEVA-2019-CA-1022896

PATIENT
  Sex: Female

DRUGS (7)
  1. METHOTREXATE. [Suspect]
     Active Substance: METHOTREXATE
     Indication: RHEUMATOID ARTHRITIS
     Route: 065
  2. ORENCIA [Suspect]
     Active Substance: ABATACEPT
     Indication: PRODUCT USED FOR UNKNOWN INDICATION
     Route: 065
  3. ARAVA [Suspect]
     Active Substance: LEFLUNOMIDE
     Indication: RHEUMATOID ARTHRITIS
     Route: 065
  4. ESOMEPRAZOLE. [Concomitant]
     Active Substance: ESOMEPRAZOLE MAGNESIUM
     Indication: GASTRIC DISORDER
  5. PREDNISONE. [Concomitant]
     Active Substance: PREDNISONE
     Dosage: 8.5 MILLIGRAM DAILY;
  6. ENBREL [Suspect]
     Active Substance: ETANERCEPT
     Indication: RHEUMATOID ARTHRITIS
     Route: 065
  7. IRON SUCROSE [Concomitant]
     Active Substance: IRON SUCROSE
     Route: 065

REACTIONS (5)
  - Therapeutic product effect incomplete [Unknown]
  - Contraindicated product administered [Unknown]
  - Drug ineffective [Unknown]
  - Cardiac failure [Unknown]
  - Hepatic enzyme increased [Unknown]
